FAERS Safety Report 16704726 (Version 1)
Quarter: 2019Q3

REPORT INFORMATION
  Report Type: Spontaneous
  Country: US (occurrence: US)
  Receive Date: 20190814
  Receipt Date: 20190814
  Transmission Date: 20191004
  Serious: No
  Sender: FDA-Public Use
  Company Number: US-MANNKIND CORPORATION-2019MK000017

PATIENT
  Age: 65 Year
  Sex: Male

DRUGS (2)
  1. AFREZZA [Suspect]
     Active Substance: INSULIN HUMAN
     Indication: TYPE 2 DIABETES MELLITUS
  2. HUMALOG [Concomitant]
     Active Substance: INSULIN LISPRO
     Indication: TYPE 2 DIABETES MELLITUS

REACTIONS (1)
  - Cough [Not Recovered/Not Resolved]
